FAERS Safety Report 5458456-1 (Version None)
Quarter: 2007Q3

REPORT INFORMATION
  Report Type: 
  Country: None (occurrence: None)
  Receive Date: 20070919
  Receipt Date: 20070508
  Transmission Date: 20080115
  Serious: Yes (Other)
  Sender: FDA-Public Use
  Company Number: US-ASTRAZENECA-2007UW06730

PATIENT
  Age: 9799 Day
  Sex: Female
  Weight: 93.2 kg

DRUGS (3)
  1. SEROQUEL [Suspect]
     Route: 048
     Dates: start: 20070401, end: 20070401
  2. SEROQUEL [Suspect]
     Route: 048
     Dates: start: 20070331, end: 20070331
  3. SEROQUEL [Suspect]
     Route: 048
     Dates: start: 20070330, end: 20070330

REACTIONS (1)
  - TACHYCARDIA [None]
